FAERS Safety Report 20226881 (Version 2)
Quarter: 2022Q1

REPORT INFORMATION
  Report Type: Report from Study
  Country: CA (occurrence: CA)
  Receive Date: 20211224
  Receipt Date: 20220123
  Transmission Date: 20220424
  Serious: Yes (Other)
  Sender: FDA-Public Use
  Company Number: CA-BoehringerIngelheim-2021-BI-144357

PATIENT
  Age: 72 Year
  Sex: Male
  Weight: 72.1 kg

DRUGS (1)
  1. OFEV [Suspect]
     Active Substance: NINTEDANIB
     Indication: Idiopathic pulmonary fibrosis
     Route: 048
     Dates: start: 20190131, end: 20211019

REACTIONS (1)
  - Lung transplant [Recovered/Resolved]

NARRATIVE: CASE EVENT DATE: 20211019
